FAERS Safety Report 12542911 (Version 5)
Quarter: 2016Q4

REPORT INFORMATION
  Report Type: Spontaneous
  Country: IT (occurrence: IT)
  Receive Date: 20160710
  Receipt Date: 20161229
  Transmission Date: 20170207
  Serious: Yes (Life-Threatening)
  Sender: FDA-Public Use
  Company Number: IT-TEVA-673888ACC

PATIENT
  Age: 80 Year
  Sex: Male

DRUGS (11)
  1. SINVACOR - 20 MG - COMPRESSE RIVESTITE CON FILM - MSD ITALIA S.R.L. [Concomitant]
     Active Substance: SIMVASTATIN
     Indication: HYPERCHOLESTEROLAEMIA
     Route: 048
     Dates: end: 20160509
  2. PANTORC - 40 MG - COMPRESSE GASTRORESISTENTI - BB FARMA S.R.L [Concomitant]
     Active Substance: PANTOPRAZOLE SODIUM
     Indication: PRODUCT USED FOR UNKNOWN INDICATION
     Route: 048
     Dates: end: 20160509
  3. FINASTERIDE TEVA ITALIA - 5 MG - COMPRESSE RIVESTITE CON FILM [Concomitant]
     Active Substance: FINASTERIDE
     Indication: BENIGN PROSTATIC HYPERPLASIA
     Route: 048
     Dates: end: 20160509
  4. CLEXANE - 4000 U.I. ML - SOLUZIONE INIETTABILE - SANOFI S.P.A. [Concomitant]
     Active Substance: ENOXAPARIN SODIUM
     Indication: PRODUCT USED FOR UNKNOWN INDICATION
     Route: 058
     Dates: end: 20160509
  5. LEVOFLOX ACINA SANDOZ - 500 MG - COMPRESSE RIVESTITE CON FILM [Concomitant]
     Indication: URINARY TRACT INFECTION
     Route: 048
     Dates: end: 20160509
  6. TRITTICO - 60 MG/ML - GOCCE ORALI SOLUZIONE [Concomitant]
     Active Substance: TRAZODONE HYDROCHLORIDE
     Indication: AGITATED DEPRESSION
     Route: 048
     Dates: end: 20160509
  7. OLANZAPINA TEVA - 2.5 MG - COMPRESSE RIVESTITE CON FILM - TEVA B.V. [Suspect]
     Active Substance: OLANZAPINE
     Indication: DELUSION
     Dosage: 7.5 MILLIGRAM DAILY;
     Route: 048
     Dates: start: 20160401, end: 20160512
  8. OLANZAPINA TEVA - 2.5 MG - COMPRESSE RIVESTITE CON FILM - TEVA B.V. [Suspect]
     Active Substance: OLANZAPINE
     Indication: DELIRIUM
  9. CARDICOR - 1.25 MG - COMPRESSE - PROGRAMMI SANITARI INTEGRATI S.R.L. [Concomitant]
     Active Substance: BISOPROLOL
     Indication: HYPERTENSIVE HEART DISEASE
     Route: 048
     Dates: end: 20160617
  10. BROMAZEPAM MYLAN GENERICS ITALIA - 2,5 MG/ML GOCCE ORALI SOLUZIONE [Concomitant]
     Active Substance: BROMAZEPAM
     Indication: ANXIETY
     Route: 048
     Dates: end: 20160509
  11. OLANZAPINA TEVA - 2.5 MG - COMPRESSE RIVESTITE CON FILM - TEVA B.V. [Suspect]
     Active Substance: OLANZAPINE
     Indication: COGNITIVE DISORDER

REACTIONS (3)
  - Torsade de pointes [Recovered/Resolved]
  - Hyponatraemia [Recovered/Resolved]
  - Electrocardiogram QT prolonged [Recovered/Resolved]

NARRATIVE: CASE EVENT DATE: 20160509
